FAERS Safety Report 5023015-1 (Version None)
Quarter: 2006Q2

REPORT INFORMATION
  Report Type: 
  Country: None (occurrence: None)
  Receive Date: 20060426
  Receipt Date: 20060111
  Transmission Date: 20061013
  Serious: Yes (Other)
  Sender: FDA-Public Use
  Company Number: 2006006382

PATIENT
  Age: 78 Year
  Sex: Female

DRUGS (8)
  1. LYRICA [Suspect]
     Indication: HERPES ZOSTER
     Dosage: 75 MG (75 MG,1 IN 1 D)
     Dates: start: 20051114
  2. CYMBALTA [Concomitant]
  3. POTASSIUM (POTASSIUM) [Concomitant]
  4. ALL OTHER THERAPEUTIC PRODUCTS (ALL OTHER THERAPEUTIC PRODUCTS) [Concomitant]
  5. MULTIVITAMIN [Concomitant]
  6. LANOXIN [Concomitant]
  7. PROPRANOLOL [Concomitant]
  8. TYLENOL PM (DIPHENHYDRAMINE, PARACETAMOL) [Concomitant]

REACTIONS (3)
  - DRY MOUTH [None]
  - VISION BLURRED [None]
  - WEIGHT INCREASED [None]
